FAERS Safety Report 5804857-9 (Version None)
Quarter: 2008Q3

REPORT INFORMATION
  Report Type: 
  Country: None (occurrence: None)
  Receive Date: 20080707
  Receipt Date: 20080421
  Transmission Date: 20090109
  Serious: No
  Sender: FDA-Public Use
  Company Number: 560049

PATIENT
  Age: 64 Year
  Sex: Female
  Weight: 89.4 kg

DRUGS (2)
  1. CELLCEPT [Suspect]
     Indication: PROPHYLAXIS AGAINST TRANSPLANT REJECTION
     Dosage: 250 MG 4 PER DAY
     Dates: start: 20050101, end: 20080301
  2. PROGRAF [Concomitant]

REACTIONS (1)
  - MALIGNANT MELANOMA [None]
